FAERS Safety Report 9391810 (Version 1)
Quarter: 2013Q3

REPORT INFORMATION
  Report Type: Spontaneous
  Country: GB (occurrence: GB)
  Receive Date: 20130709
  Receipt Date: 20130709
  Transmission Date: 20140515
  Serious: Yes (Hospitalization, Other)
  Sender: FDA-Public Use
  Company Number: GB-TEVA-416552ISR

PATIENT
  Age: 11 Year
  Sex: Male

DRUGS (19)
  1. VINCRISTINE [Suspect]
     Indication: NEOPLASM MALIGNANT
     Dosage: LAST DOSE PRIOR TO SAE: 16/MAY/2012
     Route: 050
     Dates: start: 20111207
  2. LYOVAC COSMEGEN [Suspect]
     Indication: NEOPLASM MALIGNANT
     Dosage: LAST DOSE PRIOR TO SAE: 16/MAY/2012
     Route: 050
     Dates: start: 20111207
  3. BEVACIZUMAB [Suspect]
     Indication: NEOPLASM MALIGNANT
     Route: 050
     Dates: start: 20111207
  4. DOXORUBICIN NOS [Suspect]
     Indication: NEOPLASM MALIGNANT
     Dosage: GIVEN TWICE DAILY EVERY 3 WEEKS
     Route: 050
     Dates: start: 20111207
  5. IFOSFAMIDE [Suspect]
     Indication: NEOPLASM MALIGNANT
     Dosage: GIVEN TWICE DAILY ONCE EVERY 3 WEEKS, LAST DOSE PRIOR TO SAE 17/MAY/2012
     Route: 050
     Dates: start: 20111207
  6. FENTANYL [Concomitant]
     Indication: PRODUCT USED FOR UNKNOWN INDICATION
     Dates: start: 20111204
  7. FENTANYL [Concomitant]
     Dates: start: 20111207
  8. ONDANSETRON [Concomitant]
     Indication: PRODUCT USED FOR UNKNOWN INDICATION
     Dates: start: 20111207
  9. METOCLOPRAMIDE [Concomitant]
     Indication: PRODUCT USED FOR UNKNOWN INDICATION
     Dates: start: 20120104
  10. METOCLOPRAMIDE [Concomitant]
     Dates: start: 20120330
  11. LEVEMIR [Concomitant]
     Indication: PRODUCT USED FOR UNKNOWN INDICATION
  12. CLOTRIMAZOLE [Concomitant]
     Indication: PRODUCT USED FOR UNKNOWN INDICATION
     Route: 050
     Dates: start: 20120104
  13. CLOTRIMAZOLE [Concomitant]
     Dates: start: 20120121
  14. GELCLAIR [Concomitant]
     Indication: PRODUCT USED FOR UNKNOWN INDICATION
     Dates: start: 20120104
  15. NOVORAPID [Concomitant]
     Indication: PRODUCT USED FOR UNKNOWN INDICATION
  16. ORAMORPH [Concomitant]
     Indication: PRODUCT USED FOR UNKNOWN INDICATION
     Dates: start: 20120105
  17. CO-TRIMOXAZOLE [Concomitant]
     Indication: PRODUCT USED FOR UNKNOWN INDICATION
     Dates: start: 20111207
  18. OXYBUTYNIN [Concomitant]
     Indication: PRODUCT USED FOR UNKNOWN INDICATION
     Dates: start: 20120321
  19. LANSOPRAZOLE [Concomitant]
     Indication: PRODUCT USED FOR UNKNOWN INDICATION
     Dates: start: 20120418

REACTIONS (2)
  - Clostridium difficile colitis [Recovered/Resolved]
  - Febrile neutropenia [Unknown]
